FAERS Safety Report 13351982 (Version 1)
Quarter: 2017Q1

REPORT INFORMATION
  Report Type: Spontaneous
  Country: US (occurrence: US)
  Receive Date: 20170320
  Receipt Date: 20170320
  Transmission Date: 20170429
  Serious: No
  Sender: FDA-Public Use
  Company Number: US-SA-2016SA050586

PATIENT
  Age: 77 Year
  Sex: Female

DRUGS (1)
  1. NASACORT ALLERGY 24HR [Suspect]
     Active Substance: TRIAMCINOLONE ACETONIDE
     Route: 065

REACTIONS (5)
  - Withdrawal syndrome [Unknown]
  - Mass [Unknown]
  - Balance disorder [Unknown]
  - Vision blurred [Unknown]
  - Myalgia [Unknown]
